FAERS Safety Report 8554533-7 (Version None)
Quarter: 2012Q3

REPORT INFORMATION
  Report Type: 
  Country: None (occurrence: None)
  Receive Date: 20120731
  Receipt Date: 20120723
  Transmission Date: 20120928
  Serious: Yes (Other)
  Sender: FDA-Public Use
  Company Number: DE-ELI_LILLY_AND_COMPANY-DE201207007183

PATIENT
  Sex: Female

DRUGS (4)
  1. FORTEO [Suspect]
     Indication: OSTEOPOROSIS
     Dosage: UNK, QD
     Route: 058
     Dates: start: 20120618
  2. BEPANTHEN                               /AUT/ [Concomitant]
  3. OESTROFEMINAL [Concomitant]
  4. CALCIMAGON D3 [Concomitant]

REACTIONS (5)
  - BLOOD PRESSURE INCREASED [None]
  - TONGUE COATED [None]
  - DIZZINESS [None]
  - GLOSSODYNIA [None]
  - HEART RATE INCREASED [None]
